FAERS Safety Report 9543680 (Version 4)
Quarter: 2014Q4

REPORT INFORMATION
  Report Type: Spontaneous
  Country: US (occurrence: US)
  Receive Date: 20130923
  Receipt Date: 20141226
  Transmission Date: 20150529
  Serious: Yes (Hospitalization)
  Sender: FDA-Public Use
  Company Number: US-BAYER-2013-114161

PATIENT
  Age: 30 Year
  Sex: Female
  Weight: 58.5 kg

DRUGS (6)
  1. WELLBUTRIN [Concomitant]
     Active Substance: BUPROPION HYDROCHLORIDE
  2. MIRENA [Suspect]
     Active Substance: LEVONORGESTREL
     Indication: CONTRACEPTION
     Dosage: 20 MCG/24HR, CONT
     Route: 015
     Dates: start: 20080317, end: 20100517
  3. PROZAC [Concomitant]
     Active Substance: FLUOXETINE HYDROCHLORIDE
  4. NUVIGIL [Concomitant]
     Active Substance: ARMODAFINIL
  5. MIRENA [Suspect]
     Active Substance: LEVONORGESTREL
     Indication: CONTRACEPTION
     Dosage: 20 MCG/24HR, CONT
     Route: 015
     Dates: start: 199909, end: 200312
  6. NEURONTIN [Concomitant]
     Active Substance: GABAPENTIN

REACTIONS (10)
  - Uterine perforation [None]
  - Emotional distress [None]
  - Device expulsion [None]
  - Injury [None]
  - Depression [None]
  - Dyspareunia [None]
  - Anxiety [None]
  - Device dislocation [None]
  - Pain [None]
  - Device issue [None]

NARRATIVE: CASE EVENT DATE: 2008
